FAERS Safety Report 14613634 (Version 1)
Quarter: 2018Q1

REPORT INFORMATION
  Report Type: Spontaneous
  Country: US (occurrence: US)
  Receive Date: 20180308
  Receipt Date: 20180308
  Transmission Date: 20180509
  Serious: Yes (Other)
  Sender: FDA-Public Use
  Company Number: None

PATIENT
  Age: 10 Year
  Sex: Female
  Weight: 62.6 kg

DRUGS (2)
  1. TRAZODONE [Concomitant]
     Active Substance: TRAZODONE HYDROCHLORIDE
  2. ATOMOXETANE 18MG BID [Suspect]
     Active Substance: ATOMOXETINE
     Indication: ATTENTION DEFICIT/HYPERACTIVITY DISORDER
     Route: 048
     Dates: start: 20171208

REACTIONS (6)
  - Nausea [None]
  - Therapy change [None]
  - Product substitution issue [None]
  - Insurance issue [None]
  - Drug intolerance [None]
  - Headache [None]

NARRATIVE: CASE EVENT DATE: 20180223
